FAERS Safety Report 17412579 (Version 2)
Quarter: 2020Q1

REPORT INFORMATION
  Report Type: Spontaneous
  Country: JP (occurrence: JP)
  Receive Date: 20200213
  Receipt Date: 20200306
  Transmission Date: 20200409
  Serious: Yes (Life-Threatening, Hospitalization)
  Sender: FDA-Public Use
  Company Number: JP-GLAXOSMITHKLINE-JP2019JPN210831

PATIENT
  Age: 15 Year
  Sex: Female
  Weight: 56 kg

DRUGS (23)
  1. BENLYSTA [Suspect]
     Active Substance: BELIMUMAB
     Dosage: 200 MG, 1D
     Route: 058
     Dates: start: 20191011, end: 20191011
  2. TOCOPHEROL ACETATE TABLET [Concomitant]
     Dosage: 50 MG, BID
     Dates: start: 20150205
  3. PREDNISOLONE. [Suspect]
     Active Substance: PREDNISOLONE
     Indication: SYSTEMIC LUPUS ERYTHEMATOSUS
     Dosage: 12 MG, TID
     Route: 048
     Dates: start: 20150324
  4. BENLYSTA [Suspect]
     Active Substance: BELIMUMAB
     Dosage: 200 MG, 1D
     Route: 058
     Dates: start: 20191004, end: 20191004
  5. METHYLPREDNISOLONE. [Concomitant]
     Active Substance: METHYLPREDNISOLONE
     Dosage: 1000 MG, 1D
     Dates: start: 20190821
  6. MYCOPHENOLATE MOFETIL CAPSULE [Concomitant]
     Dosage: 250 MG, BID
     Dates: start: 20180227
  7. FAMOTIDINE TABLETS [Concomitant]
     Active Substance: FAMOTIDINE
     Dosage: 10 MG, QD
     Dates: start: 20150306
  8. GLYCYRON [Concomitant]
     Dosage: UNK
     Dates: end: 20190813
  9. PREDNISOLONE. [Suspect]
     Active Substance: PREDNISOLONE
     Dosage: UNK UNK, TID
     Route: 048
     Dates: start: 20190814
  10. PREDNISOLONE. [Suspect]
     Active Substance: PREDNISOLONE
     Dosage: 0.9 MG/KG, 1D
     Route: 048
     Dates: start: 20190925, end: 20191008
  11. BENLYSTA [Suspect]
     Active Substance: BELIMUMAB
     Dosage: 200 MG, 1D
     Route: 058
     Dates: start: 20191016, end: 20191016
  12. BENLYSTA [Suspect]
     Active Substance: BELIMUMAB
     Dosage: UNK UNK, WE
     Route: 058
     Dates: start: 20200116
  13. PREDNISOLONE. [Suspect]
     Active Substance: PREDNISOLONE
     Dosage: 0.8 MG/KG, 1D
     Route: 048
     Dates: start: 20191009, end: 20191105
  14. PREDNISOLONE. [Suspect]
     Active Substance: PREDNISOLONE
     Dosage: 27 MG, 1D
     Route: 048
     Dates: start: 20191106
  15. PLAQUENIL [Concomitant]
     Active Substance: HYDROXYCHLOROQUINE SULFATE
     Dosage: UNK
     Dates: end: 20190821
  16. BENLYSTA [Suspect]
     Active Substance: BELIMUMAB
     Indication: SYSTEMIC LUPUS ERYTHEMATOSUS
     Dosage: 200 MG, 1D
     Route: 058
     Dates: start: 20190920, end: 20190920
  17. PREDNISOLONE. [Suspect]
     Active Substance: PREDNISOLONE
     Dosage: UNK UNK, TID
     Route: 048
     Dates: start: 20190831
  18. BENLYSTA [Suspect]
     Active Substance: BELIMUMAB
     Dosage: 200 MG, 1D
     Route: 058
     Dates: start: 20190927, end: 20190927
  19. THYRADIN S [Concomitant]
     Active Substance: LEVOTHYROXINE SODIUM
     Dosage: 25 MG, QD
     Dates: start: 20150205
  20. MEIACT [Concomitant]
     Active Substance: CEFDITOREN PIVOXIL
     Dosage: UNK
     Dates: end: 201908
  21. PREDNISOLONE. [Suspect]
     Active Substance: PREDNISOLONE
     Dosage: 36 MG, 1D
     Route: 048
     Dates: start: 20190907, end: 20190909
  22. PREDNISOLONE. [Suspect]
     Active Substance: PREDNISOLONE
     Dosage: 45 MG, 1D
     Route: 048
     Dates: start: 20190909, end: 20190924
  23. METHYLPREDNISOLONE. [Concomitant]
     Active Substance: METHYLPREDNISOLONE
     Dosage: UNK
     Dates: start: 20190828, end: 20190830

REACTIONS (4)
  - Staphylococcal abscess [Recovering/Resolving]
  - Erythema [Recovering/Resolving]
  - Pain [Recovering/Resolving]
  - Swelling [Recovering/Resolving]

NARRATIVE: CASE EVENT DATE: 20191016
